FAERS Safety Report 24811057 (Version 7)
Quarter: 2025Q1

REPORT INFORMATION
  Report Type: Spontaneous
  Country: TR (occurrence: TR)
  Receive Date: 20250106
  Receipt Date: 20250321
  Transmission Date: 20250408
  Serious: No
  Sender: PFIZER
  Company Number: TR-PFIZER INC-202400327541

PATIENT
  Age: 52 Year
  Sex: Female
  Weight: 60 kg

DRUGS (2)
  1. ENBREL [Suspect]
     Active Substance: ETANERCEPT
     Indication: Rheumatoid arthritis
     Dosage: 50 MG, WEEKLY
     Route: 058
     Dates: start: 2024
  2. ENBREL [Suspect]
     Active Substance: ETANERCEPT
     Indication: Rheumatic disorder

REACTIONS (2)
  - Device deployment issue [Unknown]
  - Drug dose omission by device [Unknown]
